FAERS Safety Report 14966981 (Version 1)
Quarter: 2018Q2

REPORT INFORMATION
  Report Type: Report from Study
  Country: IN (occurrence: IN)
  Receive Date: 20180604
  Receipt Date: 20180604
  Transmission Date: 20180711
  Serious: Yes (Other)
  Sender: FDA-Public Use
  Company Number: IN-ROCHE-2127705

PATIENT

DRUGS (1)
  1. BEVACIZUMAB. [Suspect]
     Active Substance: BEVACIZUMAB
     Indication: MACULAR OEDEMA
     Dosage: 1.25 MG/0.05 ML
     Route: 050

REACTIONS (8)
  - Retinal detachment [Unknown]
  - Macular fibrosis [Unknown]
  - Vitreous detachment [Unknown]
  - Vitreous adhesions [Unknown]
  - Off label use [Unknown]
  - Intentional product use issue [Unknown]
  - Rhegmatogenous retinal detachment [Unknown]
  - Macular hole [Unknown]
